FAERS Safety Report 8431385-7 (Version None)
Quarter: 2012Q2

REPORT INFORMATION
  Report Type: 
  Country: None (occurrence: None)
  Receive Date: 20120613
  Receipt Date: 20120607
  Transmission Date: 20120825
  Serious: Yes (Other)
  Sender: FDA-Public Use
  Company Number: US-PFIZER INC-2012137546

PATIENT
  Sex: Male
  Weight: 74.83 kg

DRUGS (5)
  1. NORTRIPTYLINE HYDROCHLORIDE [Suspect]
     Dosage: 5 MG, 2X/DAY
     Dates: start: 20120501, end: 20120501
  2. OXYCODONE [Concomitant]
     Indication: NECK PAIN
     Dosage: 5 MG, DAILY
  3. LYRICA [Suspect]
     Dosage: 150 MG, 2X/DAY
     Route: 048
     Dates: start: 20120101, end: 20120501
  4. LYRICA [Suspect]
     Indication: NERVE INJURY
     Dosage: 75 MG, UNK
     Route: 048
     Dates: start: 20120301
  5. OXYCODONE [Concomitant]
     Indication: BACK PAIN

REACTIONS (4)
  - SOMNOLENCE [None]
  - DEPRESSION [None]
  - DRUG INEFFECTIVE [None]
  - SUICIDAL IDEATION [None]
